FAERS Safety Report 13436453 (Version 1)
Quarter: 2017Q2

REPORT INFORMATION
  Report Type: Spontaneous
  Country: US (occurrence: US)
  Receive Date: 20170412
  Receipt Date: 20170412
  Transmission Date: 20170830
  Serious: Yes (Hospitalization)
  Sender: FDA-Public Use
  Company Number: None

PATIENT
  Sex: Female

DRUGS (10)
  1. LISIN/HCTZ [Concomitant]
  2. THALOMID [Concomitant]
     Active Substance: THALIDOMIDE
  3. METHYLPRED [Concomitant]
     Active Substance: METHYLPREDNISOLONE
  4. OXYCODONE [Concomitant]
     Active Substance: OXYCODONE
  5. MAG OX [Concomitant]
     Active Substance: MAGNESIUM OXIDE
  6. HYDROMET [Concomitant]
     Active Substance: HOMATROPINE METHYLBROMIDE\HYDROCODONE BITARTRATE
  7. JADENU [Suspect]
     Active Substance: DEFERASIROX
     Dates: start: 20161217
  8. LEVOTHYROXINE. [Concomitant]
     Active Substance: LEVOTHYROXINE
  9. ALPRAZOLAM. [Concomitant]
     Active Substance: ALPRAZOLAM
  10. JADENU [Suspect]
     Active Substance: DEFERASIROX
     Dates: start: 20161217

REACTIONS (2)
  - Drug dose omission [None]
  - Confusional state [None]

NARRATIVE: CASE EVENT DATE: 2017
